FAERS Safety Report 10654543 (Version 4)
Quarter: 2015Q3

REPORT INFORMATION
  Report Type: Report from Study
  Country: RU (occurrence: RU)
  Receive Date: 20141216
  Receipt Date: 20150825
  Transmission Date: 20151125
  Serious: Yes (Life-Threatening, Other)
  Sender: FDA-Public Use
  Company Number: RU-SA-2014SA172828

PATIENT
  Age: 64 Year
  Sex: Male
  Weight: 72 kg

DRUGS (15)
  1. DEXAMETHASONE. [Concomitant]
     Active Substance: DEXAMETHASONE
     Indication: PREMEDICATION
     Route: 030
     Dates: start: 20140414, end: 20140623
  2. DIMEDROL [Concomitant]
     Active Substance: DIPHENHYDRAMINE
     Indication: PREMEDICATION
     Dosage: 1 IN 3 WEEK
     Route: 030
     Dates: start: 20140414, end: 20140623
  3. FILGRASTIM [Concomitant]
     Active Substance: FILGRASTIM
     Indication: FEBRILE NEUTROPENIA
     Dosage: 1 IN 3 WEEK, 30 MLN ED
     Route: 058
     Dates: start: 20140512, end: 20140623
  4. FILGRASTIM [Concomitant]
     Active Substance: FILGRASTIM
     Indication: PROPHYLAXIS
     Dosage: 30 MLN ED
     Route: 058
     Dates: start: 20140421, end: 20140505
  5. FILGRASTIM [Concomitant]
     Active Substance: FILGRASTIM
     Indication: FEBRILE NEUTROPENIA
     Dosage: 30 MLN ED
     Route: 058
     Dates: start: 20140421, end: 20140505
  6. JEVTANA [Suspect]
     Active Substance: CABAZITAXEL
     Indication: PROSTATE CANCER
     Route: 042
     Dates: start: 20140414, end: 20140621
  7. GOSERELIN [Concomitant]
     Active Substance: GOSERELIN
     Indication: PROSTATE CANCER
     Dosage: 1 IN 3 M
     Route: 030
     Dates: start: 20140512
  8. FILGRASTIM [Concomitant]
     Active Substance: FILGRASTIM
     Indication: PROPHYLAXIS
     Dosage: 1 IN 3 WEEK, 30 MLN ED
     Route: 058
     Dates: start: 20140512, end: 20140623
  9. ONDANSETRON [Concomitant]
     Active Substance: ONDANSETRON
     Indication: PREMEDICATION
     Dosage: DOSE (8 MG,M)
     Route: 030
     Dates: start: 20140414, end: 20140623
  10. INVESTIGATIONAL DRUG [Suspect]
     Active Substance: INVESTIGATIONAL PRODUCT
     Indication: PROSTATE CANCER
     Route: 042
     Dates: start: 20140407, end: 20140630
  11. PREDNISOLONE. [Concomitant]
     Active Substance: PREDNISOLONE
     Indication: PREMEDICATION
     Route: 048
     Dates: start: 20140414, end: 20140630
  12. TRIPTORELIN [Concomitant]
     Active Substance: TRIPTORELIN
     Indication: PROSTATE CANCER
     Dosage: DOSE: (11.25 MG,1 IN 3 M)
     Route: 030
     Dates: start: 20101210, end: 20140512
  13. NIMESULIDE [Concomitant]
     Active Substance: NIMESULIDE
     Indication: PROSTATE CANCER
     Route: 048
  14. RANITIDINE [Concomitant]
     Active Substance: RANITIDINE\RANITIDINE HYDROCHLORIDE
     Indication: PREMEDICATION
     Dosage: 1 IN 3 WEEKS
     Route: 030
     Dates: start: 20140414, end: 20140623
  15. JEVTANA [Suspect]
     Active Substance: CABAZITAXEL
     Indication: PROSTATE CANCER
     Route: 042
     Dates: start: 20140621, end: 20140623

REACTIONS (1)
  - Pulmonary embolism [Unknown]

NARRATIVE: CASE EVENT DATE: 20140721
